FAERS Safety Report 11086601 (Version 1)
Quarter: 2015Q2

REPORT INFORMATION
  Report Type: Spontaneous
  Country: US (occurrence: None)
  Receive Date: 20150430
  Receipt Date: 20150430
  Transmission Date: 20150821
  Serious: No
  Sender: FDA-Public Use
  Company Number: FK201501984

PATIENT
  Age: 32 Year
  Sex: Female

DRUGS (5)
  1. METHYLPREDNISOLONE SODIUM SUCCINATE. [Suspect]
     Active Substance: METHYLPREDNISOLONE SODIUM SUCCINATE
     Indication: MULTIPLE SCLEROSIS RELAPSE
     Dosage: 1 GM, 250 ML ONE TIME INFUSED OVER 1 HOUR, INTRAVENOUS (NOT OTHERWISE SPECIFIED)
     Route: 042
     Dates: start: 20150423, end: 20150423
  2. LISINOPRIL. [Concomitant]
     Active Substance: LISINOPRIL
  3. CYMBALTA [Concomitant]
     Active Substance: DULOXETINE HYDROCHLORIDE
  4. LYRICA [Concomitant]
     Active Substance: PREGABALIN
  5. AMANTADINE [Concomitant]
     Active Substance: AMANTADINE

REACTIONS (4)
  - Ear discomfort [None]
  - Pruritus generalised [None]
  - Palmar erythema [None]
  - Sensory disturbance [None]

NARRATIVE: CASE EVENT DATE: 20150423
